FAERS Safety Report 6771119-5 (Version None)
Quarter: 2010Q2

REPORT INFORMATION
  Report Type: 
  Country: None (occurrence: None)
  Receive Date: 20100616
  Receipt Date: 20100608
  Transmission Date: 20101027
  Serious: Yes (Other)
  Sender: FDA-Public Use
  Company Number: US-JNJFOC-20100603334

PATIENT
  Sex: Female
  Weight: 79.38 kg

DRUGS (5)
  1. DURAGESIC-100 [Suspect]
     Indication: ARTHRITIS
     Route: 062
  2. DURAGESIC-100 [Suspect]
     Route: 062
  3. UNSPECIFIED ARTHRITIC MEDICATION [Suspect]
     Indication: ARTHRITIS
     Route: 065
  4. METHOTREXATE [Concomitant]
     Indication: ARTHRITIS
     Route: 048
  5. SIMPONI [Concomitant]
     Route: 065

REACTIONS (6)
  - DRUG ADMINISTERED AT INAPPROPRIATE SITE [None]
  - MYOCARDIAL INFARCTION [None]
  - PAIN [None]
  - SKIN LACERATION [None]
  - THERAPEUTIC RESPONSE DECREASED [None]
  - WRONG TECHNIQUE IN DRUG USAGE PROCESS [None]
